FAERS Safety Report 18341100 (Version 1)
Quarter: 2020Q4

REPORT INFORMATION
  Report Type: Spontaneous
  Country: DK (occurrence: DK)
  Receive Date: 20201003
  Receipt Date: 20201003
  Transmission Date: 20210113
  Serious: Yes (Life-Threatening)
  Sender: FDA-Public Use
  Company Number: DK-TEVA-2020-DK-1834321

PATIENT
  Age: 37 Year
  Sex: Male
  Weight: 123 kg

DRUGS (2)
  1. LOSARTANKALIUM ^TEVA^ [Suspect]
     Active Substance: LOSARTAN
     Indication: HYPERTENSION
     Dosage: 100 MG
     Route: 048
     Dates: start: 20190201, end: 20200907
  2. LERCATIO [Suspect]
     Active Substance: LERCANIDIPINE HYDROCHLORIDE
     Indication: HYPERTENSION
     Dosage: 20 MG
     Route: 048
     Dates: start: 20190227

REACTIONS (3)
  - Angioedema [Recovered/Resolved]
  - Speech disorder [Recovered/Resolved]
  - Sensation of foreign body [Recovered/Resolved]

NARRATIVE: CASE EVENT DATE: 20200906
